FAERS Safety Report 6099779-5 (Version None)
Quarter: 2009Q1

REPORT INFORMATION
  Report Type: 
  Country: None (occurrence: None)
  Receive Date: 20090303
  Receipt Date: 20090218
  Transmission Date: 20090719
  Serious: Yes (Other)
  Sender: FDA-Public Use
  Company Number: PHHY2008GB28662

PATIENT
  Sex: Female

DRUGS (2)
  1. CLOZARIL [Suspect]
     Indication: SCHIZOPHRENIA
     Dosage: 6.25 MG, UNK
     Route: 048
     Dates: start: 20081110
  2. OLANZAPINE [Concomitant]
     Dosage: 10 MG, QD

REACTIONS (5)
  - BLOOD PRESSURE FLUCTUATION [None]
  - BODY TEMPERATURE FLUCTUATION [None]
  - INSOMNIA [None]
  - PULSE ABNORMAL [None]
  - TACHYCARDIA [None]
